FAERS Safety Report 5280088-9 (Version None)
Quarter: 2007Q1

REPORT INFORMATION
  Report Type: 
  Country: None (occurrence: None)
  Receive Date: 20070329
  Receipt Date: 20070319
  Transmission Date: 20070707
  Serious: Yes (Other)
  Sender: FDA-Public Use
  Company Number: IE-PFIZER INC-2006152690

PATIENT
  Sex: Male

DRUGS (3)
  1. LUSTRAL [Suspect]
     Indication: DEPRESSION
     Route: 048
  2. LUSTRAL [Suspect]
     Dosage: DAILY DOSE:100MG
     Route: 048
  3. NASONEX [Concomitant]
     Route: 045

REACTIONS (2)
  - LIBIDO DISORDER [None]
  - PSYCHIATRIC SYMPTOM [None]
